FAERS Safety Report 5720988-6 (Version None)
Quarter: 2008Q2

REPORT INFORMATION
  Report Type: 
  Country: None (occurrence: None)
  Receive Date: 20080429
  Receipt Date: 20080424
  Transmission Date: 20081010
  Serious: Yes (Other)
  Sender: FDA-Public Use
  Company Number: US-ASTRAZENECA-2008UW04676

PATIENT
  Age: 651 Month
  Sex: Female
  Weight: 63.6 kg

DRUGS (12)
  1. SYMBICORT [Suspect]
     Indication: BRONCHIAL HYPERREACTIVITY
     Route: 055
     Dates: start: 20080213, end: 20080217
  2. SYMBICORT [Suspect]
     Indication: NASAL CONGESTION
     Route: 055
     Dates: start: 20080213, end: 20080217
  3. RED YEAST RICE [Concomitant]
     Indication: HYPERLIPIDAEMIA
  4. ZOLOFT [Concomitant]
     Indication: SLEEP DISORDER
     Route: 048
  5. CENTRUM SILVER [Concomitant]
  6. COENZYME Q10 [Concomitant]
  7. FISH OIL [Concomitant]
  8. FLAXSEED OIL [Concomitant]
  9. GLUCOSAMINE WITH CHONDROITIN [Concomitant]
  10. CALCIUM [Concomitant]
  11. MAGNESIUM [Concomitant]
  12. ZINC [Concomitant]

REACTIONS (2)
  - FEELING ABNORMAL [None]
  - MYOCLONIC EPILEPSY [None]
